FAERS Safety Report 9769479 (Version 1)
Quarter: 2013Q3

REPORT INFORMATION
  Report Type: Spontaneous
  Country: US (occurrence: None)
  Receive Date: 20130910
  Receipt Date: 20130910
  Transmission Date: 20140515
  Serious: Yes (Hospitalization)
  Sender: FDA-Public Use
  Company Number: GAM-231-13-US

PATIENT
  Age: 78 Year
  Sex: Female

DRUGS (1)
  1. OCTAGAM [Suspect]
     Indication: HYPOGAMMAGLOBULINAEMIA
     Dosage: 20 G (1 X 1 / MONTH) IV (NOT OTHERWISE SPEC)
     Route: 042
     Dates: start: 2013, end: 20130813

REACTIONS (7)
  - Oesophageal spasm [None]
  - Dyskinesia oesophageal [None]
  - Occipital neuralgia [None]
  - Burning sensation [None]
  - Burning sensation [None]
  - Erythema [None]
  - Dyspnoea [None]
